FAERS Safety Report 4894338-1 (Version None)
Quarter: 2006Q1

REPORT INFORMATION
  Report Type: 
  Country: None (occurrence: None)
  Receive Date: 20060127
  Receipt Date: 20050228
  Transmission Date: 20060701
  Serious: No
  Sender: FDA-Public Use
  Company Number: US-BRISTOL-MYERS SQUIBB COMPANY-12878740

PATIENT
  Age: 35 Year
  Sex: Male
  Weight: 79 kg

DRUGS (1)
  1. ULTRAVATE [Suspect]
     Indication: ECZEMA
     Route: 061
     Dates: start: 20050205

REACTIONS (1)
  - DRUG INEFFECTIVE [None]
